FAERS Safety Report 7122344-5 (Version None)
Quarter: 2010Q4

REPORT INFORMATION
  Report Type: 
  Country: None (occurrence: None)
  Receive Date: 20101124
  Receipt Date: 20101116
  Transmission Date: 20110411
  Serious: Yes (Hospitalization)
  Sender: FDA-Public Use
  Company Number: PHHO2010SG16873

PATIENT
  Sex: Female
  Weight: 42.1 kg

DRUGS (4)
  1. STI571/CGP57148B T35717+TAB [Suspect]
     Indication: GASTROINTESTINAL STROMAL TUMOUR
     Dosage: 400 MG, UNK
     Route: 048
     Dates: start: 20100212, end: 20101106
  2. STI571/CGP57148B T35717+TAB [Suspect]
     Dosage: 400 MG, UNK
     Route: 048
     Dates: start: 20101110
  3. MAXOLON [Concomitant]
  4. ENTECAVIR [Concomitant]

REACTIONS (3)
  - ABDOMINAL WALL ABSCESS [None]
  - ABSCESS DRAINAGE [None]
  - INCISION SITE ABSCESS [None]
